FAERS Safety Report 12707036 (Version 1)
Quarter: 2016Q3

REPORT INFORMATION
  Report Type: Spontaneous
  Country: US (occurrence: US)
  Receive Date: 20160901
  Receipt Date: 20160901
  Transmission Date: 20161109
  Serious: No
  Sender: FDA-Public Use
  Company Number: US-MYLANLABS-2016M1027816

PATIENT
  Age: 74 Year
  Sex: Male

DRUGS (1)
  1. MODAFINIL TABLETS, USP [Suspect]
     Active Substance: MODAFINIL
     Indication: NARCOLEPSY
     Dosage: 600 MG, QD
     Route: 048
     Dates: end: 20160701

REACTIONS (10)
  - Gait disturbance [Not Recovered/Not Resolved]
  - Paranoia [Not Recovered/Not Resolved]
  - Pain [Not Recovered/Not Resolved]
  - Fatigue [Not Recovered/Not Resolved]
  - Malaise [Not Recovered/Not Resolved]
  - Tremor [Not Recovered/Not Resolved]
  - Dizziness [Not Recovered/Not Resolved]
  - Asthenia [Not Recovered/Not Resolved]
  - Aphasia [Not Recovered/Not Resolved]
  - Nausea [Not Recovered/Not Resolved]

NARRATIVE: CASE EVENT DATE: 20160630
